FAERS Safety Report 8874470 (Version 1)
Quarter: 2012Q4

REPORT INFORMATION
  Report Type: 
  Country: US (occurrence: US)
  Receive Date: 20121023
  Receipt Date: 20121023
  Transmission Date: 20130627
  Serious: Yes (Other)
  Sender: FDA-Public Use
  Company Number: US-BAYER-2012-108923

PATIENT

DRUGS (5)
  1. ALEVE CAPLET/TABLET,MIDOL EXTENDED RELIEF CAPLET [Suspect]
     Indication: HEADACHE
     Dosage: 500 mg, BID
  2. UNKNOWN [Concomitant]
  3. AMITRIPTYLINE [Concomitant]
     Indication: HEADACHE
     Dosage: Daily dose 30 mg
  4. IMITREX [Concomitant]
     Indication: HEADACHE
     Dosage: 25 mg, PRN
  5. MELATONIN [Concomitant]
     Indication: INSOMNIA
     Dosage: 10 mg, HS

REACTIONS (2)
  - Depression [None]
  - Suicidal ideation [None]
